FAERS Safety Report 23343903 (Version 1)
Quarter: 2023Q4

REPORT INFORMATION
  Report Type: Spontaneous
  Country: IL (occurrence: IL)
  Receive Date: 20231227
  Receipt Date: 20231227
  Transmission Date: 20240110
  Serious: Yes (Death, Other)
  Sender: FDA-Public Use
  Company Number: IL-009507513-2311ISR004371

PATIENT
  Age: 90 Year
  Sex: Male

DRUGS (1)
  1. INVANZ [Suspect]
     Active Substance: ERTAPENEM SODIUM
     Indication: Infection
     Dosage: UNK
     Dates: start: 2023

REACTIONS (3)
  - Death [Fatal]
  - Speech disorder [Unknown]
  - Slow speech [Unknown]

NARRATIVE: CASE EVENT DATE: 20230101
